FAERS Safety Report 22218423 (Version 1)
Quarter: 2023Q2

REPORT INFORMATION
  Report Type: Spontaneous
  Country: US (occurrence: None)
  Receive Date: 20230414
  Receipt Date: 20230414
  Transmission Date: 20230721
  Serious: Yes (Disabling)
  Sender: FDA-Public Use
  Company Number: None

PATIENT
  Age: 33 Year
  Sex: Male
  Weight: 87.75 kg

DRUGS (5)
  1. METHYLPHENIDATE HYDROCHLORIDE [Suspect]
     Active Substance: METHYLPHENIDATE HYDROCHLORIDE
     Indication: Attention deficit hyperactivity disorder
     Route: 048
     Dates: start: 20220801, end: 20230331
  2. METHYLPHENIDATE HYDROCHLORIDE [Suspect]
     Active Substance: METHYLPHENIDATE HYDROCHLORIDE
     Indication: Attention deficit hyperactivity disorder
     Dosage: FREQUENCY : EVERY DAY BEFORE NOON;?
     Route: 048
     Dates: start: 20230401
  3. CABERGOLINE [Concomitant]
     Active Substance: CABERGOLINE
  4. Natrol [Concomitant]
  5. VITAMIN D3 [Concomitant]
     Active Substance: CHOLECALCIFEROL

REACTIONS (14)
  - Impulse-control disorder [None]
  - Disturbance in attention [None]
  - Mood swings [None]
  - Depression [None]
  - Anger [None]
  - Anxiety [None]
  - Frustration tolerance decreased [None]
  - Dyskinesia [None]
  - Communication disorder [None]
  - Therapeutic response shortened [None]
  - Product substitution issue [None]
  - Brain fog [None]
  - Thinking abnormal [None]
  - Tremor [None]

NARRATIVE: CASE EVENT DATE: 20230401
